FAERS Safety Report 4645746-5 (Version None)
Quarter: 2005Q2

REPORT INFORMATION
  Report Type: 
  Country: None (occurrence: None)
  Receive Date: 20050425
  Receipt Date: 20050425
  Transmission Date: 20051028
  Serious: Yes (Other)
  Sender: FDA-Public Use
  Company Number: None

PATIENT
  Sex: Female
  Weight: 75.9 kg

DRUGS (4)
  1. GEMZAR [Suspect]
     Dosage: Q 21 DAYS X 6 CYCLES
     Dates: start: 20040928
  2. CARBOPLATIN [Suspect]
     Dosage: Q 21 DAYS X 6 CYCLES
  3. CELEBREX [Suspect]
     Dosage: Q 21 DAYS X 6 CYCLES
     Dates: start: 20050404, end: 20050421
  4. PLENDIL [Concomitant]

REACTIONS (6)
  - AMNESIA [None]
  - ARTERIAL DISORDER [None]
  - ASTHENIA [None]
  - BRAIN MASS [None]
  - CEREBRAL INFARCTION [None]
  - GAIT DISTURBANCE [None]
